FAERS Safety Report 9515614 (Version 2)
Quarter: 2013Q3

REPORT INFORMATION
  Report Type: Spontaneous
  Country: JP (occurrence: JP)
  Receive Date: 20130911
  Receipt Date: 20130918
  Transmission Date: 20140515
  Serious: Yes (Other)
  Sender: FDA-Public Use
  Company Number: JP-ASTELLAS-2013JP009279

PATIENT
  Sex: Female

DRUGS (2)
  1. PROGRAF [Suspect]
     Indication: MYASTHENIA GRAVIS
     Dosage: 3 MG, UNKNOWN/D
     Route: 048
  2. PLETAAL [Concomitant]
     Dosage: UNK
     Route: 048

REACTIONS (1)
  - Retinal vein thrombosis [Recovering/Resolving]
